FAERS Safety Report 9907530 (Version 1)
Quarter: 2014Q1

REPORT INFORMATION
  Report Type: Spontaneous
  Country: IN (occurrence: IN)
  Receive Date: 20140218
  Receipt Date: 20140218
  Transmission Date: 20141002
  Serious: Yes (Other)
  Sender: FDA-Public Use
  Company Number: IN-BAXTER-2014BAX008412

PATIENT
  Sex: Male

DRUGS (2)
  1. HUMAN IMMUNOGLOBULIN IVIG, TRIPLE VIRALLY REDUCED (TVR) SOLUTION FOR I [Suspect]
     Indication: FOETAL EXPOSURE DURING PREGNANCY
     Dosage: 2 DOSES OF 1 G/KG ALTERNATE DAYS AT 21 WEEKS PERIOD GESTATION
     Route: 042
  2. HUMAN IMMUNOGLOBULIN IVIG, TRIPLE VIRALLY REDUCED (TVR) SOLUTION FOR I [Suspect]
     Indication: THROMBOCYTOPENIA

REACTIONS (2)
  - Premature delivery [Unknown]
  - Thrombocytopenia [Unknown]
